FAERS Safety Report 14672000 (Version 9)
Quarter: 2021Q1

REPORT INFORMATION
  Report Type: Other
  Country: CA (occurrence: CA)
  Receive Date: 20180323
  Receipt Date: 20210322
  Transmission Date: 20210419
  Serious: Yes (Other)
  Sender: FDA-Public Use
  Company Number: CA-APOTEX-2018AP008090

PATIENT
  Age: 68 Year
  Sex: Female

DRUGS (4)
  1. METHOTREXATE. [Suspect]
     Active Substance: METHOTREXATE
     Indication: PRODUCT USED FOR UNKNOWN INDICATION
     Dosage: 20 MG, UNK
     Route: 065
  2. SALBUTAMOL [Suspect]
     Active Substance: ALBUTEROL
     Dosage: UNK, OTHER
     Route: 050
  3. SALBUTAMOL [Suspect]
     Active Substance: ALBUTEROL
     Indication: PRODUCT USED FOR UNKNOWN INDICATION
     Dosage: UNK, INHALATION
     Route: 055
  4. FLUTICASONE PROPIONATE W/SALMETEROL XINAFOATE [Suspect]
     Active Substance: FLUTICASONE PROPIONATE\SALMETEROL XINAFOATE
     Indication: PRODUCT USED FOR UNKNOWN INDICATION
     Dosage: 1 DF, BID
     Route: 065

REACTIONS (6)
  - Asthma [Unknown]
  - Blood cholesterol increased [Unknown]
  - Blood test abnormal [Unknown]
  - Diabetes mellitus [Unknown]
  - Therapeutic product effect incomplete [Unknown]
  - Hypertension [Unknown]
